FAERS Safety Report 4564714-5 (Version None)
Quarter: 2005Q1

REPORT INFORMATION
  Report Type: 
  Country: None (occurrence: None)
  Receive Date: 20050121
  Receipt Date: 20050110
  Transmission Date: 20050727
  Serious: Yes (Hospitalization)
  Sender: FDA-Public Use
  Company Number: 2004218086FR

PATIENT
  Age: 56 Year
  Sex: Male
  Weight: 3.4033 kg

DRUGS (2)
  1. DOXORUBICIN HYDROCHLORIDE [Suspect]
     Indication: ILL-DEFINED DISORDER
     Dosage: 10 MG, INTRAVENOUS
     Route: 042
  2. IFOSFAMIDE (IFOSFAMIDE) (IFOSFAMIDE) [Suspect]
     Indication: ILL-DEFINED DISORDER
     Dosage: 500 MG, INTRAVENOUS
     Route: 042

REACTIONS (5)
  - ANAEMIA [None]
  - BONE MARROW DEPRESSION [None]
  - GLOMERULONEPHRITIS MEMBRANOUS [None]
  - HERPES ZOSTER [None]
  - RENAL FAILURE CHRONIC [None]
